FAERS Safety Report 8394034-2 (Version None)
Quarter: 2012Q2

REPORT INFORMATION
  Report Type: 
  Country: None (occurrence: None)
  Receive Date: 20120530
  Receipt Date: 20120522
  Transmission Date: 20120825
  Serious: Yes (Death)
  Sender: FDA-Public Use
  Company Number: US-JNJFOC-20120519460

PATIENT
  Sex: Male
  Weight: 45.36 kg

DRUGS (3)
  1. PREDNISONE TAB [Concomitant]
     Indication: PROSTATE CANCER
     Route: 048
     Dates: start: 20110104
  2. ZYTIGA [Concomitant]
     Indication: PROSTATE CANCER
     Route: 048
     Dates: start: 20110101, end: 20111227
  3. FENTANYL-100 [Suspect]
     Indication: PAIN
     Route: 062
     Dates: start: 20111024

REACTIONS (3)
  - PROSTATE CANCER [None]
  - DRUG INEFFECTIVE [None]
  - SECRETION DISCHARGE [None]
